FAERS Safety Report 7866864-4 (Version None)
Quarter: 2011Q4

REPORT INFORMATION
  Report Type: 
  Country: None (occurrence: None)
  Receive Date: 20111028
  Receipt Date: 20111021
  Transmission Date: 20120403
  Serious: Yes (Hospitalization)
  Sender: FDA-Public Use
  Company Number: US-ABBOTT-11P-163-0867550-00

PATIENT
  Sex: Female
  Weight: 120.31 kg

DRUGS (28)
  1. COZAAR [Concomitant]
     Indication: HYPERTENSION
  2. POTASSIUM CHLORIDE [Concomitant]
     Indication: ELECTROLYTE SUBSTITUTION THERAPY
  3. MOTRIN [Concomitant]
     Indication: MUSCULOSKELETAL STIFFNESS
  4. VITAMIN D [Concomitant]
     Indication: VITAMIN SUPPLEMENTATION
     Dosage: WEEKLY, PRESCRIPTION STRENGTH
  5. GLUCOSAMINE SULFATE [Concomitant]
     Indication: ARTHROPATHY
  6. HUMIRA [Suspect]
     Indication: RHEUMATOID ARTHRITIS
     Dates: start: 20080101, end: 20110601
  7. HUMIRA [Suspect]
     Dates: start: 20110801, end: 20110801
  8. TOPROL-XL [Concomitant]
     Indication: HYPERTENSION
  9. VITAMIN D [Concomitant]
     Dosage: DAILY, OVER THE COUNTER
  10. ARAVA [Concomitant]
     Indication: RHEUMATOID ARTHRITIS
  11. VICODIN [Concomitant]
     Indication: ARTHRALGIA
  12. ZYRTEC [Concomitant]
     Indication: HYPERSENSITIVITY
  13. MAGNESIUM MALATE [Concomitant]
     Indication: FIBROMYALGIA
  14. LASIX [Concomitant]
     Indication: HYPERTENSION
  15. LYRICA [Concomitant]
     Indication: FIBROMYALGIA
  16. ADVAIR DISKUS 100/50 [Concomitant]
     Indication: ASTHMA EXERCISE INDUCED
  17. PRILOSEC [Concomitant]
     Indication: GASTROOESOPHAGEAL REFLUX DISEASE
  18. ZOLOFT [Concomitant]
     Indication: DEPRESSION
  19. ASCORBIC ACID [Concomitant]
     Indication: VITAMIN SUPPLEMENTATION
  20. FIBER TABLETS [Concomitant]
     Indication: PRODUCT USED FOR UNKNOWN INDICATION
  21. MOTRIN [Concomitant]
     Indication: PAIN
  22. IMITREX [Concomitant]
     Indication: MIGRAINE
  23. FLEXERIL [Concomitant]
     Indication: MUSCLE SPASMS
  24. SYNTHROID [Concomitant]
     Indication: HYPOTHYROIDISM
  25. FIORICET [Concomitant]
     Indication: MIGRAINE
  26. VITAMIN TAB [Concomitant]
     Indication: VITAMIN SUPPLEMENTATION
  27. VITAMIN B COMPLEX CAP [Concomitant]
     Indication: VITAMIN SUPPLEMENTATION
  28. CALCIUM CARBONATE [Concomitant]
     Indication: MINERAL SUPPLEMENTATION

REACTIONS (7)
  - FATIGUE [None]
  - SOFT TISSUE DISORDER [None]
  - CELLULITIS [None]
  - STAPHYLOCOCCAL INFECTION [None]
  - INFLAMMATION [None]
  - SCAR [None]
  - SPINAL COLUMN STENOSIS [None]
